FAERS Safety Report 18517948 (Version 1)
Quarter: 2020Q4

REPORT INFORMATION
  Report Type: Spontaneous
  Country: US (occurrence: US)
  Receive Date: 20201118
  Receipt Date: 20201118
  Transmission Date: 20210114
  Serious: Yes (Other)
  Sender: FDA-Public Use
  Company Number: NVSC2020US302394

PATIENT
  Age: 71 Year
  Sex: Male

DRUGS (2)
  1. CARBOPLATIN. [Suspect]
     Active Substance: CARBOPLATIN
     Indication: PROSTATE CANCER
     Dosage: UNK, CYCLIC (12 CYCLES)
     Route: 065
     Dates: start: 2018
  2. GEMCITABINE. [Suspect]
     Active Substance: GEMCITABINE
     Indication: PROSTATE CANCER
     Dosage: UNK, CYCLIC (12 CYCLES)
     Route: 065
     Dates: start: 2018

REACTIONS (2)
  - Prostate cancer recurrent [Unknown]
  - Product use in unapproved indication [Unknown]
